FAERS Safety Report 6132619-4 (Version None)
Quarter: 2009Q1

REPORT INFORMATION
  Report Type: 
  Country: None (occurrence: None)
  Receive Date: 20090324
  Receipt Date: 20090310
  Transmission Date: 20090719
  Serious: Yes (Hospitalization)
  Sender: FDA-Public Use
  Company Number: KV200801159

PATIENT
  Age: 64 Year
  Sex: Female
  Weight: 69.4 kg

DRUGS (9)
  1. ISOSORBIDE MONONITRATE [Suspect]
     Indication: CARDIAC DISORDER
     Dosage: 60 MG, QD; ORAL
     Route: 048
     Dates: start: 19980101
  2. CRESTOR [Concomitant]
  3. LEVOTHYROXINE SODIUM [Concomitant]
  4. FUROSEMIDE [Concomitant]
  5. PLAVIX [Concomitant]
  6. METOPROLOL TARTRATE [Concomitant]
  7. MIRTAZAPINE [Concomitant]
  8. COZAAR [Concomitant]
  9. ASPIRIN [Concomitant]

REACTIONS (6)
  - CARDIAC DISORDER [None]
  - CHEST PAIN [None]
  - COLD SWEAT [None]
  - HYPERHIDROSIS [None]
  - PRODUCT QUALITY ISSUE [None]
  - SENSATION OF PRESSURE [None]
